FAERS Safety Report 16595671 (Version 2)
Quarter: 2021Q3

REPORT INFORMATION
  Report Type: Spontaneous
  Country: US (occurrence: US)
  Receive Date: 20190719
  Receipt Date: 20210818
  Transmission Date: 20211014
  Serious: Yes (Death)
  Sender: FDA-Public Use
  Company Number: US-TEVA-2019-US-1079181

PATIENT
  Age: 70 Year
  Sex: Male

DRUGS (1)
  1. VALSARTAN SOLCO [Suspect]
     Active Substance: VALSARTAN
     Indication: HYPERTENSION
     Dates: start: 20170524, end: 20180616

REACTIONS (2)
  - Recalled product administered [Unknown]
  - Hepatic cancer [Fatal]
